FAERS Safety Report 22844361 (Version 4)
Quarter: 2023Q4

REPORT INFORMATION
  Report Type: Spontaneous
  Country: US (occurrence: US)
  Receive Date: 20230821
  Receipt Date: 20231027
  Transmission Date: 20240110
  Serious: No
  Sender: FDA-Public Use
  Company Number: US-DAIICHI SANKYO, INC.-DSU-2023-133923AA

PATIENT
  Sex: Female

DRUGS (1)
  1. TURALIO [Suspect]
     Active Substance: PEXIDARTINIB HYDROCHLORIDE
     Indication: Product used for unknown indication
     Dosage: ONE CAPSULE BY MOUTH IN THE MORNING AND TWO CAPSULES BY MOUTH AT NIGHT
     Route: 048

REACTIONS (2)
  - Rash [Unknown]
  - Rash pruritic [Unknown]
